FAERS Safety Report 8496117-5 (Version None)
Quarter: 2012Q3

REPORT INFORMATION
  Report Type: 
  Country: None (occurrence: None)
  Receive Date: 20120709
  Receipt Date: 20120628
  Transmission Date: 20120928
  Serious: Yes (Hospitalization)
  Sender: FDA-Public Use
  Company Number: JP-VERTEX PHARMACEUTICALS INC.-AE-2012-004354

PATIENT
  Age: 78 Year
  Sex: Male

DRUGS (10)
  1. MAGMITT [Concomitant]
     Route: 048
  2. ADALAT CC [Concomitant]
     Route: 048
  3. FAMOTIDINE [Concomitant]
     Route: 048
  4. PEG-INTRON [Concomitant]
     Indication: HEPATITIS C
     Route: 058
     Dates: start: 20120312, end: 20120319
  5. REBETOL [Concomitant]
     Indication: HEPATITIS C
     Route: 048
     Dates: start: 20120312, end: 20120319
  6. NESINA [Concomitant]
     Route: 048
     Dates: end: 20120403
  7. DIOVAN [Concomitant]
     Route: 048
  8. TELAVIC (TELAPREVIR) [Suspect]
     Indication: HEPATITIS C
     Route: 048
     Dates: start: 20120312, end: 20120319
  9. RHYTHMY [Concomitant]
     Route: 048
  10. NESINA [Concomitant]
     Route: 048
     Dates: start: 20120404

REACTIONS (1)
  - RENAL FAILURE ACUTE [None]
